FAERS Safety Report 10672183 (Version 1)
Quarter: 2014Q4

REPORT INFORMATION
  Report Type: Spontaneous
  Country: US (occurrence: US)
  Receive Date: 20141223
  Receipt Date: 20141223
  Transmission Date: 20150529
  Serious: Yes (Hospitalization)
  Sender: FDA-Public Use
  Company Number: US-BAUSCH-BL-2014-010505

PATIENT
  Sex: Female
  Weight: 59 kg

DRUGS (4)
  1. FYCOMPA [Suspect]
     Active Substance: PERAMPANEL
     Indication: PRODUCT USED FOR UNKNOWN INDICATION
     Dates: start: 201406
  2. MYSOLINE [Suspect]
     Active Substance: PRIMIDONE
     Indication: EPILEPSY
  3. VITAMIN D [Suspect]
     Active Substance: CHOLECALCIFEROL
  4. DILANTIN [Suspect]
     Active Substance: PHENYTOIN
     Indication: EPILEPSY
     Dates: start: 1977

REACTIONS (11)
  - Weight increased [Unknown]
  - Seizure [Not Recovered/Not Resolved]
  - Medication error [Unknown]
  - Dizziness [Unknown]
  - Haematoma [Unknown]
  - Medication error [Unknown]
  - Disturbance in attention [Unknown]
  - Fall [Unknown]
  - Fracture [Unknown]
  - Overdose [Unknown]
  - Balance disorder [Not Recovered/Not Resolved]

NARRATIVE: CASE EVENT DATE: 201406
